FAERS Safety Report 5186566-5 (Version None)
Quarter: 2006Q4

REPORT INFORMATION
  Report Type: 
  Country: None (occurrence: None)
  Receive Date: 20061213
  Receipt Date: 20061130
  Transmission Date: 20070319
  Serious: Yes (Hospitalization)
  Sender: FDA-Public Use
  Company Number: TPA2006A02150

PATIENT
  Age: 44 Year
  Sex: Female
  Weight: 97.977 kg

DRUGS (5)
  1. ACTOS [Suspect]
     Indication: DIABETES MELLITUS NON-INSULIN-DEPENDENT
     Dosage: 45 MG, 1 IN 1 D, PER ORAL
     Route: 048
     Dates: start: 20030101
  2. LISINOPRIL [Concomitant]
  3. CYMBALTA [Concomitant]
  4. IBUPROFEN [Concomitant]
  5. UNKNOWN WATER PILL (CAFFEINE, AMMONIUM CHLORIDE) [Concomitant]

REACTIONS (6)
  - APPENDICITIS [None]
  - BLOOD GLUCOSE INCREASED [None]
  - DEPRESSION [None]
  - HEADACHE [None]
  - HYPERTENSION [None]
  - THINKING ABNORMAL [None]
